FAERS Safety Report 8465575-4 (Version None)
Quarter: 2012Q2

REPORT INFORMATION
  Report Type: 
  Country: None (occurrence: None)
  Receive Date: 20120626
  Receipt Date: 20120619
  Transmission Date: 20120825
  Serious: No
  Sender: FDA-Public Use
  Company Number: US-B.I. PHARMACEUTICALS,INC./RIDGEFIELD-2012-BP-14069BP

PATIENT
  Sex: Female

DRUGS (2)
  1. ZANTAC [Suspect]
  2. ZANTAC [Suspect]
     Indication: DYSPEPSIA
     Route: 048
     Dates: start: 20120601, end: 20120619

REACTIONS (1)
  - DYSPEPSIA [None]
